FAERS Safety Report 24549895 (Version 1)
Quarter: 2024Q4

REPORT INFORMATION
  Report Type: Spontaneous
  Country: US (occurrence: US)
  Receive Date: 20241025
  Receipt Date: 20241025
  Transmission Date: 20250115
  Serious: No
  Sender: PFIZER
  Company Number: US-PFIZER INC-202400227214

PATIENT
  Age: 38 Year
  Sex: Female

DRUGS (2)
  1. EUCRISA [Suspect]
     Active Substance: CRISABOROLE
     Indication: Dermatitis atopic
     Dosage: UNK
  2. CIBINQO [Concomitant]
     Active Substance: ABROCITINIB
     Indication: Dermatitis atopic
     Dosage: 100 MG

REACTIONS (1)
  - Drug ineffective [Unknown]
